FAERS Safety Report 11005273 (Version 1)
Quarter: 2015Q2

REPORT INFORMATION
  Report Type: Spontaneous
  Country: GB (occurrence: GB)
  Receive Date: 20150409
  Receipt Date: 20150409
  Transmission Date: 20150821
  Serious: Yes (Disabling)
  Sender: FDA-Public Use
  Company Number: GB-ACTAVIS-2015-07288

PATIENT
  Age: 83 Year
  Sex: Female

DRUGS (4)
  1. AMITRIPTYLINE [Concomitant]
     Active Substance: AMITRIPTYLINE
     Indication: PRODUCT USED FOR UNKNOWN INDICATION
     Dosage: 10 MG, QHS
     Route: 065
  2. SYMBICORT [Concomitant]
     Active Substance: BUDESONIDE\FORMOTEROL FUMARATE DIHYDRATE
     Indication: PRODUCT USED FOR UNKNOWN INDICATION
     Dosage: UNK. 200/6
     Route: 065
  3. NAPROXEN. [Concomitant]
     Active Substance: NAPROXEN
     Indication: PRODUCT USED FOR UNKNOWN INDICATION
     Dosage: 250MG UP TO TID
     Route: 065
  4. INDAPAMIDE (UNKNOWN) [Suspect]
     Active Substance: INDAPAMIDE
     Indication: HYPERTENSION
     Dosage: 1.5 MG, DAILY
     Route: 048
     Dates: start: 20141028, end: 20150123

REACTIONS (3)
  - Oedema peripheral [Unknown]
  - Cognitive disorder [Recovered/Resolved]
  - Memory impairment [Recovered/Resolved]

NARRATIVE: CASE EVENT DATE: 20141028
